FAERS Safety Report 12162133 (Version 1)
Quarter: 2016Q1

REPORT INFORMATION
  Report Type: Spontaneous
  Country: US (occurrence: US)
  Receive Date: 20160309
  Receipt Date: 20160309
  Transmission Date: 20160526
  Serious: Yes (Hospitalization)
  Sender: FDA-Public Use
  Company Number: US-ROCHE-1723185

PATIENT
  Sex: Female

DRUGS (2)
  1. VALIUM [Suspect]
     Active Substance: DIAZEPAM
     Indication: ANXIETY
  2. VALIUM [Suspect]
     Active Substance: DIAZEPAM
     Indication: CARDIAC ARREST
     Route: 048

REACTIONS (1)
  - Cardiac disorder [Not Recovered/Not Resolved]
